FAERS Safety Report 8231569-7 (Version None)
Quarter: 2012Q1

REPORT INFORMATION
  Report Type: 
  Country: None (occurrence: None)
  Receive Date: 20120323
  Receipt Date: 20120321
  Transmission Date: 20120608
  Serious: Yes (Other)
  Sender: FDA-Public Use
  Company Number: JP-PFIZER INC-2012057651

PATIENT
  Age: 70 Year
  Sex: Female

DRUGS (4)
  1. TEGRETOL [Suspect]
     Dosage: UNK
  2. ZOLOFT [Suspect]
     Indication: DEPRESSION
     Dosage: 25 MG, DAILY
     Route: 048
     Dates: start: 20120206, end: 20120212
  3. ZOLOFT [Suspect]
     Dosage: 50 MG, DAILY
     Route: 048
     Dates: start: 20120213
  4. DOGMATYL [Suspect]
     Dosage: 50 MG, DAILY
     Route: 048

REACTIONS (4)
  - DEPRESSED MOOD [None]
  - MUSCULOSKELETAL STIFFNESS [None]
  - AGITATION [None]
  - HEADACHE [None]
